FAERS Safety Report 7297158-6 (Version None)
Quarter: 2010Q4

REPORT INFORMATION
  Report Type: 
  Country: None (occurrence: None)
  Receive Date: 20101227
  Receipt Date: 20100317
  Transmission Date: 20110411
  Serious: Yes (Life-Threatening, Hospitalization, Disabling, Other)
  Sender: FDA-Public Use
  Company Number: WAES 1003USA02742

PATIENT
  Age: 71 Year
  Sex: Male
  Weight: 89.8122 kg

DRUGS (8)
  1. ZETIA [Suspect]
     Dosage: 10 MG/DAILY/PO
     Route: 048
     Dates: end: 20100201
  2. ALTACE [Concomitant]
  3. FLOMAX [Concomitant]
  4. LEXAPRO [Concomitant]
  5. LOPRESSOR [Concomitant]
  6. PLAVIX [Concomitant]
  7. PRAVACHOL [Concomitant]
  8. TRILIPIX [Concomitant]

REACTIONS (1)
  - PANCREATITIS ACUTE [None]
